FAERS Safety Report 5316504-3 (Version None)
Quarter: 2007Q2

REPORT INFORMATION
  Report Type: 
  Country: None (occurrence: None)
  Receive Date: 20070504
  Receipt Date: 20070423
  Transmission Date: 20071010
  Serious: Yes (Death, Life-Threatening, Hospitalization)
  Sender: FDA-Public Use
  Company Number: NO-PFIZER INC-2007031883

PATIENT
  Sex: Male

DRUGS (49)
  1. ZYVOX [Suspect]
     Indication: SEPSIS
     Route: 042
     Dates: start: 20060929, end: 20061004
  2. DIFLUCAN [Concomitant]
  3. POTASSIUM PHOSPHATE MONOBASIC [Concomitant]
  4. MIDAZOLAM HCL [Concomitant]
  5. NEXIUM [Concomitant]
  6. ENALAPRIL [Concomitant]
  7. PARACETAMOL [Concomitant]
  8. DUPHALAC [Concomitant]
  9. RITALIN [Concomitant]
  10. NEBCINA [Concomitant]
  11. MERONEM [Concomitant]
  12. DORMICUM FOR INJECTION [Concomitant]
  13. FURIX [Concomitant]
  14. STESOLID [Concomitant]
  15. ERYTHROMYCIN [Concomitant]
  16. DOBUTAMINE [Concomitant]
  17. AFIPRAN [Concomitant]
  18. GLYCERYLNITRAT [Concomitant]
  19. NIMBEX [Concomitant]
  20. KALEORID [Concomitant]
  21. CLONIDINE HCL [Concomitant]
  22. CIPROFLOXACIN HYDROCHLORIDE [Concomitant]
  23. MAGNESIUM SULFATE [Concomitant]
  24. SULFAMETHOXAZOLE + TRIMETHOPRIM [Concomitant]
  25. MORFIN [Concomitant]
  26. ATNATIV [Concomitant]
  27. FENTANYL [Concomitant]
  28. CLAFORAN [Concomitant]
  29. SODIUM CHLORIDE [Concomitant]
  30. EPINEPHRINE [Concomitant]
  31. PANTOPRAZOLE SODIUM [Concomitant]
  32. POTASSIUM CHLORIDE [Concomitant]
  33. NOVORAPID [Concomitant]
  34. CORDARONE [Concomitant]
  35. NITROPRESS [Concomitant]
  36. BACTRIM [Concomitant]
  37. FUROSEMIDE [Concomitant]
     Dosage: TEXT:50-200 MG/DAY
     Dates: start: 20060913, end: 20060929
  38. PROPOFOL ^FRESENIUS^ [Concomitant]
  39. TRIATEC [Concomitant]
  40. LEVAXIN [Concomitant]
  41. LACTULOSE [Concomitant]
  42. VENTOLIN [Concomitant]
  43. PROPOFOL [Concomitant]
  44. FRAGMIN [Concomitant]
  45. VIAGRA [Concomitant]
  46. SIMDAX [Concomitant]
  47. NEOSTIGMINE [Concomitant]
  48. DALACIN [Concomitant]
  49. ABBOTICIN [Concomitant]

REACTIONS (2)
  - MYOPATHY [None]
  - NEUROPATHY PERIPHERAL [None]
